FAERS Safety Report 14180921 (Version 1)
Quarter: 2017Q4

REPORT INFORMATION
  Report Type: Spontaneous
  Country: US (occurrence: US)
  Receive Date: 20171109
  Receipt Date: 20171109
  Transmission Date: 20180321
  Serious: Yes (Disabling, Other)
  Sender: FDA-Public Use
  Company Number: None

PATIENT
  Sex: Male
  Weight: 99 kg

DRUGS (9)
  1. TYLENOL [Concomitant]
     Active Substance: ACETAMINOPHEN
  2. LISINOPROL [Concomitant]
     Active Substance: LISINOPRIL
  3. MEGARED [Concomitant]
  4. CYMBALTA [Concomitant]
     Active Substance: DULOXETINE HYDROCHLORIDE
  5. ZYPREXA [Concomitant]
     Active Substance: OLANZAPINE
  6. XANAX [Concomitant]
     Active Substance: ALPRAZOLAM
  7. 100% TCA [Suspect]
     Active Substance: TRICHLOROACETIC ACID
     Indication: SKIN DISCOLOURATION
     Dosage: ?          QUANTITY:4 OUNCE(S);OTHER FREQUENCY:1 TIME USE;?
     Route: 061
     Dates: start: 20170725, end: 20170725
  8. BENADRYL [Concomitant]
     Active Substance: DIPHENHYDRAMINE HYDROCHLORIDE
  9. LAMICTAL [Concomitant]
     Active Substance: LAMOTRIGINE

REACTIONS (7)
  - Crying [None]
  - Skin atrophy [None]
  - Skin lesion [None]
  - Laceration [None]
  - Skin discolouration [None]
  - Skin exfoliation [None]
  - Joint range of motion decreased [None]

NARRATIVE: CASE EVENT DATE: 20170725
